FAERS Safety Report 4456025-3 (Version None)
Quarter: 2004Q3

REPORT INFORMATION
  Report Type: 
  Country: None (occurrence: None)
  Receive Date: 20040920
  Receipt Date: 20040915
  Transmission Date: 20050211
  Serious: Yes (Life-Threatening)
  Sender: FDA-Public Use
  Company Number: STA-AE-04-MTX-387

PATIENT
  Age: 7 Year
  Sex: Female

DRUGS (14)
  1. METHOTREXATE [Suspect]
     Indication: HISTIOCYTOSIS HAEMATOPHAGIC
     Dates: start: 20010101
  2. METHOTREXATE [Suspect]
     Indication: JUVENILE ARTHRITIS
     Dates: start: 20010101
  3. ENBREL [Suspect]
     Indication: HISTIOCYTOSIS HAEMATOPHAGIC
     Dates: start: 20010101, end: 20020101
  4. ENBREL [Suspect]
     Indication: JUVENILE ARTHRITIS
     Dates: start: 20010101, end: 20020101
  5. CYCLOSPORINE ( CYSCLOSPORINE) [Suspect]
     Indication: HISTIOCYTOSIS HAEMATOPHAGIC
  6. CYCLOSPORINE ( CYSCLOSPORINE) [Suspect]
     Indication: JUVENILE ARTHRITIS
  7. PREDNISOLONE [Suspect]
     Indication: HISTIOCYTOSIS HAEMATOPHAGIC
  8. PREDNISOLONE [Suspect]
     Indication: JUVENILE ARTHRITIS
  9. REMICADE [Suspect]
     Indication: HISTIOCYTOSIS HAEMATOPHAGIC
     Dates: start: 20030101, end: 20030801
  10. REMICADE [Suspect]
     Indication: JUVENILE ARTHRITIS
     Dates: start: 20030101, end: 20030801
  11. REMICADE [Suspect]
     Indication: HISTIOCYTOSIS HAEMATOPHAGIC
     Dosage: 3 MG/KG/DAY IN WEEKS 0,2 AND 4,
  12. REMICADE [Suspect]
     Indication: JUVENILE ARTHRITIS
     Dosage: 3 MG/KG/DAY IN WEEKS 0,2 AND 4,
  13. REMICADE [Suspect]
     Indication: HISTIOCYTOSIS HAEMATOPHAGIC
     Dosage: 3 MG/KG 1X PER 4 WK
  14. REMICADE [Suspect]
     Indication: JUVENILE ARTHRITIS
     Dosage: 3 MG/KG 1X PER 4 WK

REACTIONS (6)
  - AMYLOIDOSIS [None]
  - CONDITION AGGRAVATED [None]
  - HISTIOCYTOSIS HAEMATOPHAGIC [None]
  - INFLAMMATION [None]
  - JUVENILE ARTHRITIS [None]
  - TRANSAMINASES INCREASED [None]
